FAERS Safety Report 8994480 (Version 1)
Quarter: 2012Q4

REPORT INFORMATION
  Report Type: Spontaneous
  Country: US (occurrence: None)
  Receive Date: 20121228
  Receipt Date: 20121228
  Transmission Date: 20130627
  Serious: Yes (Other)
  Sender: FDA-Public Use
  Company Number: None

PATIENT
  Sex: Female
  Weight: 75.5 kg

DRUGS (3)
  1. TOPAMAX [Suspect]
     Indication: PARTIAL EPILEPSY
     Dosage: 300 MG BID 047
  2. TOPAMAX [Suspect]
     Indication: FOCAL EPILEPSY
     Dosage: 300 MG BID 047
  3. TOPAMAX [Suspect]
     Indication: COMPLEX PARTIAL SEIZURES
     Dosage: 300 MG BID 047

REACTIONS (6)
  - Convulsion [None]
  - Condition aggravated [None]
  - Depression [None]
  - Weight increased [None]
  - Product quality issue [None]
  - Anticonvulsant drug level abnormal [None]
